FAERS Safety Report 5541732-1 (Version None)
Quarter: 2007Q4

REPORT INFORMATION
  Report Type: 
  Country: None (occurrence: None)
  Receive Date: 20071129
  Receipt Date: 20070719
  Transmission Date: 20080405
  Serious: Yes (Other)
  Sender: FDA-Public Use
  Company Number: US200707004458

PATIENT
  Age: 46 Year
  Sex: Male
  Weight: 81.6 kg

DRUGS (12)
  1. ZYPREXA [Suspect]
     Indication: PERSONALITY DISORDER
     Dosage: 2.5 MG, 10 MG
     Dates: start: 20000601, end: 20051201
  2. ZYPREXA [Suspect]
     Indication: PERSONALITY DISORDER
     Dosage: 2.5 MG, 10 MG
     Dates: end: 20051201
  3. ARIPIPRAZOLE [Concomitant]
  4. RISPERIDONE [Concomitant]
  5. CHLORPROMAZINE [Concomitant]
  6. BUPROPION HYDROCHLORIDE [Concomitant]
  7. CITALOPRAM HYDROBROMIDE [Concomitant]
  8. IMIPRAMINE PAMOATE (IMIPRAMINE EMBONATE) [Concomitant]
  9. MIRTAZAPINE [Concomitant]
  10. SERTRALINE HYDROCHLORIDE [Concomitant]
  11. NEFAZODONE HCL [Concomitant]
  12. VENLAFAXINE HYDROCHLORIDE [Concomitant]

REACTIONS (5)
  - DIABETES MELLITUS [None]
  - DIABETIC COMA [None]
  - DIABETIC KETOACIDOSIS [None]
  - GLYCOSURIA [None]
  - HYPERGLYCAEMIA [None]
